FAERS Safety Report 6454878-0 (Version None)
Quarter: 2009Q4

REPORT INFORMATION
  Report Type: 
  Country: None (occurrence: None)
  Receive Date: 20091124
  Receipt Date: 20091123
  Transmission Date: 20100525
  Serious: Yes (Hospitalization)
  Sender: FDA-Public Use
  Company Number: IT-MERCK-0911ITA00056

PATIENT
  Age: 85 Year
  Sex: Female

DRUGS (4)
  1. MODURETIC 5-50 [Suspect]
     Indication: HYPERTENSION
     Route: 048
     Dates: start: 20080101, end: 20091116
  2. PAROXETINE HYDROCHLORIDE [Suspect]
     Indication: DEPRESSION
     Route: 048
     Dates: start: 20091111, end: 20091117
  3. DIAMOX SRC [Suspect]
     Indication: GLAUCOMA
     Route: 048
     Dates: start: 20091013, end: 20091116
  4. VASOTEC [Concomitant]
     Indication: HYPERTENSION
     Route: 048

REACTIONS (4)
  - CONFUSIONAL STATE [None]
  - INAPPROPRIATE ANTIDIURETIC HORMONE SECRETION [None]
  - MOTOR DYSFUNCTION [None]
  - URINARY INCONTINENCE [None]
